FAERS Safety Report 14730016 (Version 1)
Quarter: 2018Q2

REPORT INFORMATION
  Report Type: Spontaneous
  Country: JP (occurrence: JP)
  Receive Date: 20180406
  Receipt Date: 20180406
  Transmission Date: 20180711
  Serious: Yes (Other)
  Sender: FDA-Public Use
  Company Number: JP-ALLERGAN-1819281US

PATIENT

DRUGS (2)
  1. HYDROCHLOROTHIAZIDE UNK [Suspect]
     Active Substance: HYDROCHLOROTHIAZIDE
     Indication: ESSENTIAL HYPERTENSION
     Dosage: 12.5 MG, QD
     Route: 048
  2. AMLODIPINE W/TELMISARTAN [Suspect]
     Active Substance: AMLODIPINE BESYLATE\TELMISARTAN
     Indication: ESSENTIAL HYPERTENSION
     Dosage: 5+80 MG, QD
     Route: 048

REACTIONS (2)
  - Atrial fibrillation [Unknown]
  - Tachycardia [Unknown]
